FAERS Safety Report 23381866 (Version 1)
Quarter: 2024Q1

REPORT INFORMATION
  Report Type: Spontaneous
  Country: None (occurrence: JP)
  Receive Date: 20240109
  Receipt Date: 20240109
  Transmission Date: 20240409
  Serious: No
  Sender: FDA-Public Use
  Company Number: JP-Harrow Eye-2150691

PATIENT
  Age: 62 Year
  Sex: Male

DRUGS (1)
  1. VERKAZIA [Suspect]
     Active Substance: CYCLOSPORINE
     Indication: Ocular hyperaemia
     Route: 047

REACTIONS (1)
  - Eye pain [Unknown]
